FAERS Safety Report 24689635 (Version 3)
Quarter: 2025Q4

REPORT INFORMATION
  Report Type: Report from Study
  Country: US (occurrence: None)
  Receive Date: 20241203
  Receipt Date: 20251212
  Transmission Date: 20260118
  Serious: Yes (Other)
  Sender: UCB
  Company Number: US-UCBSA-2024062049

PATIENT
  Age: 8 Year
  Weight: 23.73 kg

DRUGS (3)
  1. FENFLURAMINE [Suspect]
     Active Substance: FENFLURAMINE
     Indication: Product used for unknown indication
     Dosage: 12 MG /DAY
  2. FENFLURAMINE [Suspect]
     Active Substance: FENFLURAMINE
     Dosage: 15.4 MILLIGRAM PER DAY (0.60 MILLIGRAM/KILOGRAM/DAY)
  3. FENFLURAMINE [Suspect]
     Active Substance: FENFLURAMINE
     Dosage: 0.58 MILLIGRAM/KILOGRAM/DAY (15.4 MILLIGRAM/DAY)

REACTIONS (2)
  - Non-compaction cardiomyopathy [Unknown]
  - Electrocardiogram ST-T change [Unknown]
